FAERS Safety Report 4791718-X (Version None)
Quarter: 2005Q4

REPORT INFORMATION
  Report Type: 
  Country: None (occurrence: None)
  Receive Date: 20051007
  Receipt Date: 20050929
  Transmission Date: 20060501
  Serious: Yes (Death)
  Sender: FDA-Public Use
  Company Number: US-KINGPHARMUSA00001-K200501288

PATIENT
  Age: 16 Year

DRUGS (3)
  1. TUSSIGON [Suspect]
     Route: 048
  2. CARISOPRODOL [Suspect]
     Route: 048
  3. ETHANOL [Suspect]
     Route: 048

REACTIONS (1)
  - COMPLETED SUICIDE [None]
